FAERS Safety Report 9913460 (Version 1)
Quarter: 2014Q1

REPORT INFORMATION
  Report Type: Spontaneous
  Country: US (occurrence: None)
  Receive Date: 20140218
  Receipt Date: 20140218
  Transmission Date: 20141002
  Serious: Yes (Other)
  Sender: FDA-Public Use
  Company Number: None

PATIENT
  Age: 57 Year
  Sex: Male

DRUGS (2)
  1. DOXYCLINE [Suspect]
  2. METROGEL [Suspect]

REACTIONS (5)
  - Rash [None]
  - Swelling face [None]
  - No therapeutic response [None]
  - Application site dryness [None]
  - Application site irritation [None]
